FAERS Safety Report 8122997-9 (Version None)
Quarter: 2012Q1

REPORT INFORMATION
  Report Type: 
  Country: None (occurrence: None)
  Receive Date: 20120208
  Receipt Date: 20120201
  Transmission Date: 20120608
  Serious: Yes (Hospitalization, Other)
  Sender: FDA-Public Use
  Company Number: US-US-EMD SERONO, INC.-233851K09USA

PATIENT
  Sex: Male

DRUGS (4)
  1. REBIF [Suspect]
     Indication: MULTIPLE SCLEROSIS
     Route: 058
     Dates: start: 20041006
  2. UNSPECIFIED MEDICATIONS [Concomitant]
  3. BACLOFEN [Concomitant]
     Indication: MULTIPLE SCLEROSIS
  4. GABAPENTIN [Concomitant]
     Indication: MULTIPLE SCLEROSIS

REACTIONS (4)
  - INTERVERTEBRAL DISC PROTRUSION [None]
  - AUTONOMIC NERVOUS SYSTEM IMBALANCE [None]
  - OSTEONECROSIS [None]
  - FALL [None]
